FAERS Safety Report 8121801-2 (Version None)
Quarter: 2012Q1

REPORT INFORMATION
  Report Type: 
  Country: None (occurrence: None)
  Receive Date: 20120207
  Receipt Date: 20120207
  Transmission Date: 20120608
  Serious: No
  Sender: FDA-Public Use
  Company Number: None

PATIENT
  Sex: Male
  Weight: 102.27 kg

DRUGS (4)
  1. ENALAPRIL [Concomitant]
  2. FLUOROURACIL [Suspect]
     Dosage: 16240 MG
     Dates: end: 20111018
  3. IRINOTECAN HCL [Suspect]
     Dosage: 1045 MG
     Dates: end: 20111018
  4. CARVEDILOL [Concomitant]

REACTIONS (6)
  - VOMITING [None]
  - HYPOPHAGIA [None]
  - NAUSEA [None]
  - LOSS OF CONSCIOUSNESS [None]
  - HYPOTENSION [None]
  - DIARRHOEA [None]
